FAERS Safety Report 4788657-7 (Version None)
Quarter: 2005Q4

REPORT INFORMATION
  Report Type: 
  Country: None (occurrence: None)
  Receive Date: 20051005
  Receipt Date: 20051003
  Transmission Date: 20060501
  Serious: Yes (Death)
  Sender: FDA-Public Use
  Company Number: US-GLAXOSMITHKLINE-B0395904A

PATIENT
  Age: 46 Year

DRUGS (4)
  1. DILTIAZEM [Suspect]
     Route: 048
  2. BUPROPION [Suspect]
     Route: 065
  3. PROMETHAZINE [Suspect]
     Route: 065
  4. UNSPECIFIED DRUGS [Suspect]
     Route: 065

REACTIONS (1)
  - COMPLETED SUICIDE [None]
